FAERS Safety Report 6159809-9 (Version None)
Quarter: 2009Q2

REPORT INFORMATION
  Report Type: 
  Country: None (occurrence: None)
  Receive Date: 20090420
  Receipt Date: 20090414
  Transmission Date: 20091009
  Serious: Yes (Hospitalization)
  Sender: FDA-Public Use
  Company Number: US-BIOGENIDEC-2009BI008322

PATIENT
  Sex: Female

DRUGS (2)
  1. TYSABRI [Suspect]
     Indication: MULTIPLE SCLEROSIS
     Route: 042
     Dates: start: 20071219, end: 20090101
  2. TYSABRI [Suspect]
     Route: 042
     Dates: start: 20090101

REACTIONS (7)
  - ASTHENIA [None]
  - BALANCE DISORDER [None]
  - EXERCISE TOLERANCE DECREASED [None]
  - FATIGUE [None]
  - FEELING HOT [None]
  - MENTAL IMPAIRMENT [None]
  - OVERWEIGHT [None]
